FAERS Safety Report 8293982-1 (Version None)
Quarter: 2012Q2

REPORT INFORMATION
  Report Type: 
  Country: None (occurrence: None)
  Receive Date: 20120418
  Receipt Date: 20120410
  Transmission Date: 20120825
  Serious: Yes (Hospitalization)
  Sender: FDA-Public Use
  Company Number: US-BAYER-2011-107982

PATIENT
  Sex: Female
  Weight: 60 kg

DRUGS (6)
  1. YAZ [Suspect]
     Indication: PREMENSTRUAL SYNDROME
  2. YAZ [Suspect]
     Indication: MENSTRUATION IRREGULAR
     Dosage: UNK
     Dates: start: 20080401, end: 20080601
  3. ORTHO TRI-CYCLEN [Concomitant]
  4. ALBUTEROL [Concomitant]
     Indication: ASTHMA
     Route: 045
  5. YASMIN [Suspect]
     Indication: PREMENSTRUAL SYNDROME
  6. YASMIN [Suspect]
     Indication: MENSTRUATION IRREGULAR
     Dosage: UNK
     Dates: start: 20040401, end: 20040801

REACTIONS (2)
  - PAIN [None]
  - GALLBLADDER DISORDER [None]
